FAERS Safety Report 6626019-8 (Version None)
Quarter: 2010Q1

REPORT INFORMATION
  Report Type: 
  Country: None (occurrence: None)
  Receive Date: 20100309
  Receipt Date: 20100309
  Transmission Date: 20100710
  Serious: Yes (Other)
  Sender: FDA-Public Use
  Company Number: None

PATIENT
  Age: 27 Year
  Sex: Female
  Weight: 47.6277 kg

DRUGS (4)
  1. PREDNISOLONE ACETATE 1% /FALCON/GENERIC [Suspect]
     Indication: IRIDOCYCLITIS
     Dosage: 1 GTT Q 1 HR OS NDC: FALCON:613 146 3705
     Route: 048
     Dates: start: 20100302
  2. PREDNISOLONE ACETATE 1%/FALCON/GENERIC [Suspect]
     Indication: IRIDOCYCLITIS
     Dosage: 1 GTT G 2HR OS
     Dates: start: 20090602
  3. TYLENOL PM [Concomitant]
  4. DAILY MULTIVITAMIN [Concomitant]

REACTIONS (4)
  - CONDITION AGGRAVATED [None]
  - DRUG INEFFECTIVE [None]
  - IRIDOCYCLITIS [None]
  - PRODUCT SUBSTITUTION ISSUE [None]
